FAERS Safety Report 4950789-8 (Version None)
Quarter: 2006Q1

REPORT INFORMATION
  Report Type: 
  Country: None (occurrence: None)
  Receive Date: 20060322
  Receipt Date: 20021101
  Transmission Date: 20060701
  Serious: Yes (Other)
  Sender: FDA-Public Use
  Company Number: DE-BRISTOL-MYERS SQUIBB COMPANY-13308754

PATIENT
  Age: 36 Year
  Sex: Male
  Weight: 65 kg

DRUGS (5)
  1. ZERIT [Suspect]
     Indication: HIV INFECTION
     Dates: start: 20020801
  2. TRIZIVIR [Suspect]
     Indication: HIV INFECTION
     Dates: start: 20020501, end: 20020801
  3. ZIAGEN [Suspect]
     Indication: HIV INFECTION
     Dates: start: 20020801
  4. EPIVIR [Suspect]
     Indication: HIV INFECTION
     Dates: start: 20020501
  5. PEGINTERFERON ALFA-2A [Suspect]
     Indication: HIV INFECTION
     Dates: start: 20020501, end: 20020901

REACTIONS (6)
  - HEPATITIS B [None]
  - HERPES VIRUS INFECTION [None]
  - HERPES ZOSTER [None]
  - KAPOSI'S SARCOMA [None]
  - LYMPHADENOPATHY [None]
  - OPPORTUNISTIC INFECTION [None]
